FAERS Safety Report 9728120 (Version 2)
Quarter: 2013Q4

REPORT INFORMATION
  Report Type: Spontaneous
  Country: US (occurrence: US)
  Receive Date: 20131204
  Receipt Date: 20131222
  Transmission Date: 20140711
  Serious: No
  Sender: FDA-Public Use
  Company Number: US-009507513-1311USA010465

PATIENT
  Age: 85 Year
  Sex: Female

DRUGS (6)
  1. OXYTROL FOR WOMEN [Suspect]
     Indication: MICTURITION DISORDER
     Dosage: 1 DF, Q4D
     Route: 062
     Dates: start: 20131110, end: 20131120
  2. AMLODIPINE [Concomitant]
     Indication: HYPERTENSION
     Dosage: UNK, QD
  3. LISINOPRIL [Concomitant]
     Indication: HYPERTENSION
     Dosage: UNK, QD
  4. SIMVASTATIN [Concomitant]
     Indication: BLOOD CHOLESTEROL INCREASED
     Dosage: UNK, QD
  5. SYNTHROID [Concomitant]
     Indication: HYPOTHYROIDISM
     Dosage: UNK, QD
  6. EXEMESTANE [Concomitant]
     Indication: POSTMENOPAUSE
     Dosage: 25 MG, UNKNOWN

REACTIONS (3)
  - Skin reaction [Unknown]
  - Bladder discomfort [Not Recovered/Not Resolved]
  - Micturition urgency [Not Recovered/Not Resolved]
